FAERS Safety Report 5477083-3 (Version None)
Quarter: 2007Q4

REPORT INFORMATION
  Report Type: 
  Country: None (occurrence: None)
  Receive Date: 20071003
  Receipt Date: 20071003
  Transmission Date: 20080405
  Serious: Yes (Other)
  Sender: FDA-Public Use
  Company Number: None

PATIENT
  Age: 5 Year
  Sex: Male
  Weight: 27.2158 kg

DRUGS (2)
  1. PULMICORT RESPULES [Suspect]
     Indication: ASTHMA PROPHYLAXIS
     Dosage: DAILY, INHAL
     Route: 055
     Dates: start: 20060101, end: 20060501
  2. PULMICORT RESPULES [Suspect]
     Indication: ASTHMA PROPHYLAXIS
     Dosage: DAILY, INHAL
     Route: 055
     Dates: start: 20070902, end: 20071002

REACTIONS (4)
  - ABNORMAL BEHAVIOUR [None]
  - AGGRESSION [None]
  - CRYING [None]
  - PSYCHOMOTOR HYPERACTIVITY [None]
